FAERS Safety Report 9747253 (Version 1)
Quarter: 2013Q4

REPORT INFORMATION
  Report Type: Spontaneous
  Country: US (occurrence: US)
  Receive Date: 20131212
  Receipt Date: 20131212
  Transmission Date: 20140711
  Serious: Yes (Other)
  Sender: FDA-Public Use
  Company Number: PHHY2013US141795

PATIENT
  Age: 24 Year
  Sex: Female

DRUGS (6)
  1. DEXAMETHASONE [Suspect]
     Indication: MENSTRUATION IRREGULAR
     Dosage: 0.25 MG, QOD
  2. DEXAMETHASONE [Suspect]
     Indication: ALOPECIA
  3. DEXAMETHASONE [Suspect]
     Indication: HIRSUTISM
  4. DEXAMETHASONE [Suspect]
     Indication: ACNE
  5. DEXAMETHASONE [Suspect]
     Indication: ADRENOGENITAL SYNDROME
  6. FLUOXETINE [Concomitant]
     Indication: OBSESSIVE-COMPULSIVE DISORDER

REACTIONS (1)
  - Hepatic steatosis [Unknown]
